FAERS Safety Report 11911243 (Version 3)
Quarter: 2016Q1

REPORT INFORMATION
  Report Type: Spontaneous
  Country: US (occurrence: US)
  Receive Date: 20160112
  Receipt Date: 20160310
  Transmission Date: 20160526
  Serious: No
  Sender: FDA-Public Use
  Company Number: US-PFIZER INC-2016002210

PATIENT
  Age: 68 Year
  Sex: Female

DRUGS (15)
  1. SEROQUEL [Concomitant]
     Active Substance: QUETIAPINE FUMARATE
     Dosage: 150 MG, 1X/DAY, (1 TAB AT HS AS ADJUNCT TO ABOVE/INSOMNIA)
  2. WELLBUTRIN HCL SR [Concomitant]
     Dosage: 200 MG, 2X/DAY
  3. METOPROLOL. [Concomitant]
     Active Substance: METOPROLOL
     Indication: TACHYCARDIA
     Dosage: 12.5 MG, AS NEEDED, (25MG TAB; ? TAB 9 AM)
  4. NORCO [Concomitant]
     Active Substance: ACETAMINOPHEN\HYDROCODONE BITARTRATE
     Indication: PAIN
     Dosage: 1 DF, AS NEEDED, (HYDROCODONE BITARTRATE-10MG/PARACETAMOL-325MG), 1 TAB Q4-6HRS
  5. LYRICA [Suspect]
     Active Substance: PREGABALIN
     Dosage: 150 MG, 2X/DAY
  6. HYDROXYCHLOROQUINE SULFATE. [Concomitant]
     Active Substance: HYDROXYCHLOROQUINE SULFATE
     Dosage: 200 MG, 2X/DAY
  7. CAFFEINE. [Concomitant]
     Active Substance: CAFFEINE
     Indication: SOMNOLENCE
     Dosage: 200 MG, AS NEEDED
  8. OXYBUTYNIN [Concomitant]
     Active Substance: OXYBUTYNIN
     Dosage: 5 MG, 2X/DAY, (TAKING 1.25-MG QD)
  9. MELATONIN [Concomitant]
     Active Substance: MELATONIN
     Indication: SLEEP DISORDER
     Dosage: 3MG TAB; 3-4 TABS AT HS
  10. MIRAPEX [Concomitant]
     Active Substance: PRAMIPEXOLE DIHYDROCHLORIDE
     Dosage: 1/2 TAB 2-3 HRS BEFORE HS)
  11. ASPIRIN. [Concomitant]
     Active Substance: ASPIRIN
     Dosage: 81 MG, 2X/DAY
  12. TOPAMAX [Concomitant]
     Active Substance: TOPIRAMATE
     Indication: DECREASED APPETITE
     Dosage: 4 TABS OF 25 MG AT HS
  13. LASIX [Concomitant]
     Active Substance: FUROSEMIDE
     Indication: FLUID RETENTION
     Dosage: 40 MG, AS NEEDED
  14. XANAX [Concomitant]
     Active Substance: ALPRAZOLAM
     Indication: ANXIETY
     Dosage: 0.5 MG, AS NEEDED, (1/2-1 TAB Q6HRS)
  15. SOMA [Concomitant]
     Active Substance: CARISOPRODOL
     Indication: INSOMNIA
     Dosage: 650 MG, AS NEEDED, (325 MG TAB; 2 TABS AT HS)

REACTIONS (2)
  - Pain [Unknown]
  - Malaise [Unknown]
